FAERS Safety Report 23016033 (Version 1)
Quarter: 2023Q4

REPORT INFORMATION
  Report Type: Other
  Country: US (occurrence: None)
  Receive Date: 20231002
  Receipt Date: 20231002
  Transmission Date: 20240109
  Serious: No
  Sender: FDA-Public Use
  Company Number: US-ROCHE-3431800

PATIENT
  Age: 54 Year
  Sex: Female
  Weight: 56.296 kg

DRUGS (5)
  1. OCREVUS [Suspect]
     Active Substance: OCRELIZUMAB
     Indication: Relapsing-remitting multiple sclerosis
     Dosage: LAST INFUSION WAS IN /JUN/2023, DATE OF TREATMENT: 08/NOV/2017, 10/JUN/2022, 13/JUN/2023
     Route: 065
  2. ACYCLOVIR [Concomitant]
     Active Substance: ACYCLOVIR
     Indication: Herpes virus infection
     Dosage: ORAL PILL 500 MG ONCE A DAY
  3. WELLBUTRIN [Concomitant]
     Active Substance: BUPROPION HYDROCHLORIDE
     Dosage: ORAL PILL 150 MG ONCE A DAY
     Dates: start: 2022
  4. AVONEX [Concomitant]
     Active Substance: INTERFERON BETA-1A
  5. REBIF [Concomitant]
     Active Substance: INTERFERON BETA-1A

REACTIONS (1)
  - COVID-19 [Recovered/Resolved]

NARRATIVE: CASE EVENT DATE: 20210801
